FAERS Safety Report 24370107 (Version 1)
Quarter: 2024Q3

REPORT INFORMATION
  Report Type: Report from Study
  Country: US (occurrence: US)
  Receive Date: 20240927
  Receipt Date: 20240927
  Transmission Date: 20241017
  Serious: No
  Sender: ROCHE
  Company Number: US-ROCHE-3531458

PATIENT
  Sex: Female

DRUGS (3)
  1. LUCENTIS [Suspect]
     Active Substance: RANIBIZUMAB
     Indication: Neovascular age-related macular degeneration
     Route: 065
  2. EYLEA [Suspect]
     Active Substance: AFLIBERCEPT
     Indication: Product used for unknown indication
     Route: 065
  3. CIMERLI [Suspect]
     Active Substance: RANIBIZUMAB-EQRN
     Indication: Product used for unknown indication
     Route: 065

REACTIONS (3)
  - Visual impairment [Unknown]
  - Dry age-related macular degeneration [Unknown]
  - Off label use [Unknown]
